FAERS Safety Report 5339500-9 (Version None)
Quarter: 2007Q2

REPORT INFORMATION
  Report Type: 
  Country: None (occurrence: None)
  Receive Date: 20070525
  Receipt Date: 20031105
  Transmission Date: 20071010
  Serious: Yes (Hospitalization, Congenital Anomaly)
  Sender: FDA-Public Use
  Company Number: 6005933

PATIENT
  Age: 1 Day
  Sex: Male

DRUGS (1)
  1. ENALAPRIL MALEATE [Suspect]
     Indication: HYPERTENSION
     Dosage: MATERNAL DOSE (5 MG, MATERNAL DOSE)

REACTIONS (10)
  - BIOPSY KIDNEY ABNORMAL [None]
  - CONGENITAL ANOMALY [None]
  - DRUG EXPOSURE DURING PREGNANCY [None]
  - NEONATAL ANURIA [None]
  - OLIGOHYDRAMNIOS [None]
  - PERITONEAL DIALYSIS [None]
  - PREMATURE BABY [None]
  - RENAL TUBULAR DISORDER [None]
  - SKULL MALFORMATION [None]
  - TALIPES [None]
